FAERS Safety Report 10591019 (Version 1)
Quarter: 2014Q4

REPORT INFORMATION
  Report Type: Spontaneous
  Country: US (occurrence: None)
  Receive Date: 20141117
  Receipt Date: 20141117
  Transmission Date: 20150529
  Serious: Yes (Hospitalization)
  Sender: FDA-Public Use
  Company Number: 2014CT000187

PATIENT
  Age: 56 Year
  Sex: Female

DRUGS (3)
  1. SPIRONOLACTONE. [Concomitant]
     Active Substance: SPIRONOLACTONE
  2. KORLYM [Suspect]
     Active Substance: MIFEPRISTONE
     Indication: PITUITARY-DEPENDENT CUSHING^S SYNDROME
     Route: 048
     Dates: end: 20141031
  3. POTASSIUM [Concomitant]
     Active Substance: POTASSIUM

REACTIONS (10)
  - Hypertension [None]
  - Pericardial effusion [None]
  - Blood magnesium decreased [None]
  - Blood calcium decreased [None]
  - Dyspnoea [None]
  - Pulmonary oedema [None]
  - Blood potassium decreased [None]
  - Gait disturbance [None]
  - Thyroid function test abnormal [None]
  - Speech disorder [None]

NARRATIVE: CASE EVENT DATE: 20141031
